FAERS Safety Report 5270264-3 (Version None)
Quarter: 2007Q1

REPORT INFORMATION
  Report Type: 
  Country: None (occurrence: None)
  Receive Date: 20070320
  Receipt Date: 20070306
  Transmission Date: 20070707
  Serious: Yes (Other)
  Sender: FDA-Public Use
  Company Number: GB-ELI_LILLY_AND_COMPANY-GB200703001135

PATIENT
  Age: 65 Year
  Sex: Female

DRUGS (3)
  1. GEMCITABINE HCL [Suspect]
     Indication: BLADDER CANCER
     Dosage: 1000 MG/M2, UNK
     Dates: start: 20070201
  2. CARBOPLATIN [Concomitant]
     Indication: BLADDER CANCER
     Dosage: 5 UNK, UNK
     Dates: start: 20070201
  3. BENDROFLUAZIDE [Concomitant]
     Dates: end: 20070201

REACTIONS (1)
  - HYPONATRAEMIA [None]
